FAERS Safety Report 4423191-5 (Version None)
Quarter: 2004Q3

REPORT INFORMATION
  Report Type: 
  Country: None (occurrence: None)
  Receive Date: 20040805
  Receipt Date: 20040802
  Transmission Date: 20050211
  Serious: Yes (Hospitalization)
  Sender: FDA-Public Use
  Company Number: 200412357GDS

PATIENT
  Age: 49 Year
  Sex: Male
  Weight: 93 kg

DRUGS (2)
  1. ASPIRIN [Suspect]
     Dosage: 80 MG, BID, SUBCUTANEOUS
     Route: 058
  2. ENOXAPARIN SODIUM [Suspect]
     Indication: ATRIAL FLUTTER

REACTIONS (3)
  - BLOOD CREATININE INCREASED [None]
  - HAEMATOMA [None]
  - HYPOTENSION [None]
